FAERS Safety Report 4738622-0 (Version None)
Quarter: 2005Q3

REPORT INFORMATION
  Report Type: 
  Country: None (occurrence: None)
  Receive Date: 20050803
  Receipt Date: 20050715
  Transmission Date: 20060218
  Serious: Yes (Hospitalization, Other)
  Sender: FDA-Public Use
  Company Number: DE_050616069

PATIENT
  Age: 46 Year
  Sex: Male

DRUGS (2)
  1. ZYPREXA [Suspect]
     Indication: SCHIZOPHRENIA
     Dosage: 10 MG DAY
     Dates: start: 20000101, end: 20050101
  2. ABILIFY [Concomitant]

REACTIONS (19)
  - ANAEMIA [None]
  - BLOOD SODIUM DECREASED [None]
  - BRADYCARDIA [None]
  - DIABETES MELLITUS NON-INSULIN-DEPENDENT [None]
  - DIABETIC KETOACIDOTIC HYPERGLYCAEMIC COMA [None]
  - DYSPNOEA [None]
  - HAEMORRHAGE [None]
  - HEPATIC STEATOSIS [None]
  - HYPERTENSION [None]
  - HYPOTENSION [None]
  - PANCREATIC INSUFFICIENCY [None]
  - PARAESTHESIA [None]
  - POLYNEUROPATHY [None]
  - REFLUX OESOPHAGITIS [None]
  - RENAL FAILURE ACUTE [None]
  - RHABDOMYOLYSIS [None]
  - SLEEP DISORDER [None]
  - SOMNOLENCE [None]
  - THROMBOCYTOPENIA [None]
